FAERS Safety Report 10566834 (Version 2)
Quarter: 2014Q4

REPORT INFORMATION
  Report Type: Spontaneous
  Country: JP (occurrence: JP)
  Receive Date: 20141105
  Receipt Date: 20141105
  Transmission Date: 20150529
  Serious: Yes (Disabling)
  Sender: FDA-Public Use
  Company Number: JP-MALLINCKRODT-T201403349

PATIENT
  Age: 78 Year
  Sex: Female

DRUGS (18)
  1. METHADONE [Suspect]
     Active Substance: METHADONE HYDROCHLORIDE
     Indication: CANCER PAIN
     Dosage: 5 MG (10 MG DAILY DOSE)
     Route: 048
     Dates: start: 20140217, end: 20140223
  2. SENNOSIDE [Concomitant]
     Active Substance: SENNOSIDES
     Dosage: 24 MG
     Route: 048
     Dates: end: 20140417
  3. TAKEPRON [Concomitant]
     Active Substance: LANSOPRAZOLE
     Dosage: 15 MG
     Route: 048
     Dates: end: 20140417
  4. DECADRON [Concomitant]
     Active Substance: DEXAMETHASONE
     Dosage: 6.6 MG, UNK
     Route: 051
     Dates: start: 20140417, end: 20140426
  5. METHADONE [Suspect]
     Active Substance: METHADONE HYDROCHLORIDE
     Dosage: 5 MG (15 MG DAILY DOSE)
     Route: 048
     Dates: start: 20140224, end: 20140309
  6. POSTERISAN [Concomitant]
     Active Substance: LIDOCAINE
     Dosage: 2 DF
     Route: 054
     Dates: start: 20140306, end: 20140417
  7. MEROPEN [Concomitant]
     Active Substance: MEROPENEM
     Dosage: 1 G, UNK
     Route: 051
     Dates: start: 20140416, end: 20140423
  8. SENNA [Concomitant]
     Active Substance: SENNA LEAF\SENNOSIDES\SENNOSIDES A AND B
     Dosage: 1.5 G
     Route: 048
     Dates: end: 20140417
  9. LYRICA [Concomitant]
     Active Substance: PREGABALIN
     Dosage: 150 MG
     Route: 048
     Dates: end: 20140417
  10. OXINORM [Concomitant]
     Active Substance: OXYCODONE HYDROCHLORIDE
     Dosage: 40 MG, PRN
     Route: 048
     Dates: start: 20140217
  11. DECADRON [Concomitant]
     Active Substance: DEXAMETHASONE
     Dosage: 1.5 MG
     Route: 048
     Dates: end: 20140417
  12. CYMBALTA [Concomitant]
     Active Substance: DULOXETINE HYDROCHLORIDE
     Dosage: 20 MG
     Dates: start: 20140306, end: 20140319
  13. ZOSYN [Concomitant]
     Active Substance: PIPERACILLIN SODIUM\TAZOBACTAM SODIUM
     Dosage: 9 G, UNK
     Route: 051
     Dates: start: 20140314, end: 20140320
  14. ZOSYN [Concomitant]
     Active Substance: PIPERACILLIN SODIUM\TAZOBACTAM SODIUM
     Dosage: 9 G, UNK
     Route: 051
     Dates: start: 20140323, end: 20140403
  15. METHADONE [Suspect]
     Active Substance: METHADONE HYDROCHLORIDE
     Dosage: 5 MG (10 MG DAILY DOSE)
     Route: 048
     Dates: start: 20140310, end: 20140428
  16. CELECOX [Concomitant]
     Active Substance: CELECOXIB
     Dosage: 200 MG
     Route: 048
     Dates: end: 20140417
  17. MAGMITT [Concomitant]
     Active Substance: MAGNESIUM OXIDE
     Dosage: 750 MG
     Route: 048
     Dates: start: 20140306, end: 20140417
  18. ZOSYN [Concomitant]
     Active Substance: PIPERACILLIN SODIUM\TAZOBACTAM SODIUM
     Dosage: 13.5 G, UNK
     Route: 051
     Dates: start: 20140414, end: 20140415

REACTIONS (2)
  - Cerebral infarction [Not Recovered/Not Resolved]
  - Somnolence [Recovering/Resolving]

NARRATIVE: CASE EVENT DATE: 20140310
